FAERS Safety Report 5619802-9 (Version None)
Quarter: 2008Q1

REPORT INFORMATION
  Report Type: 
  Country: None (occurrence: None)
  Receive Date: 20080206
  Receipt Date: 20080123
  Transmission Date: 20080703
  Serious: Yes (Other)
  Sender: FDA-Public Use
  Company Number: US-1164925

PATIENT
  Age: 32 Year
  Sex: Female
  Weight: 62.5964 kg

DRUGS (2)
  1. SYSTANE EYE DROPS [Suspect]
     Indication: CORNEAL ABRASION
     Dosage: (OPHTHALMIC)
     Route: 047
     Dates: start: 20080104, end: 20080104
  2. SYSTANE EYE DROPS [Suspect]
     Indication: DRY EYE
     Dosage: (OPHTHALMIC)
     Route: 047
     Dates: start: 20080104, end: 20080104

REACTIONS (12)
  - CONJUNCTIVAL HYPERAEMIA [None]
  - CONJUNCTIVAL OEDEMA [None]
  - CORNEAL EROSION [None]
  - EXPIRED DRUG ADMINISTERED [None]
  - EYE BURNS [None]
  - EYE IRRITATION [None]
  - EYE PAIN [None]
  - LACRIMATION INCREASED [None]
  - NO THERAPEUTIC RESPONSE [None]
  - PUNCTATE KERATITIS [None]
  - THERAPEUTIC PRODUCT CONTAMINATION [None]
  - VISUAL ACUITY REDUCED [None]
